FAERS Safety Report 13515781 (Version 3)
Quarter: 2017Q2

REPORT INFORMATION
  Report Type: Spontaneous
  Country: JP (occurrence: JP)
  Receive Date: 20170504
  Receipt Date: 20170626
  Transmission Date: 20170830
  Serious: Yes (Life-Threatening, Hospitalization, Disabling, Other)
  Sender: FDA-Public Use
  Company Number: JP-009507513-1705JPN000018J

PATIENT
  Age: 68 Year
  Sex: Male

DRUGS (6)
  1. SOL-MELCORT [Concomitant]
     Active Substance: METHYLPREDNISOLONE SODIUM SUCCINATE
     Dosage: 1 G, TID
     Route: 051
     Dates: start: 20170429, end: 20170501
  2. KEYTRUDA [Suspect]
     Active Substance: PEMBROLIZUMAB
     Indication: NON-SMALL CELL LUNG CANCER
     Dosage: 200 MG, Q3W
     Route: 041
     Dates: start: 20170404, end: 20170404
  3. SOL-MELCORT [Concomitant]
     Active Substance: METHYLPREDNISOLONE SODIUM SUCCINATE
     Indication: ENCEPHALITIS AUTOIMMUNE
     Dosage: 1 G, TID
     Route: 051
     Dates: start: 20170421, end: 20170423
  4. PREDONINE [Concomitant]
     Active Substance: PREDNISOLONE
     Indication: ENCEPHALITIS AUTOIMMUNE
     Dosage: 60 MG, UNK
     Route: 042
     Dates: start: 20170424
  5. PREDONINE [Concomitant]
     Active Substance: PREDNISOLONE
     Dosage: 60 MG, UNK
     Route: 042
     Dates: start: 20170502, end: 20170503
  6. PREDONINE [Concomitant]
     Active Substance: PREDNISOLONE
     Dosage: 50 MG, UNK
     Route: 042
     Dates: start: 20170512

REACTIONS (3)
  - Encephalitis autoimmune [Not Recovered/Not Resolved]
  - Ileus paralytic [Recovering/Resolving]
  - Gastrointestinal perforation [Unknown]

NARRATIVE: CASE EVENT DATE: 20170420
